FAERS Safety Report 5219308-5 (Version None)
Quarter: 2007Q1

REPORT INFORMATION
  Report Type: 
  Country: None (occurrence: None)
  Receive Date: 20061121
  Receipt Date: 20060911
  Transmission Date: 20070707
  Serious: No
  Sender: FDA-Public Use
  Company Number: TPA2006A01571

PATIENT
  Age: 82 Year
  Sex: Female
  Weight: 68.4932 kg

DRUGS (8)
  1. ROZEREM [Suspect]
     Dosage: PER ORAL
     Route: 048
     Dates: start: 20060801
  2. AMBIEN [Suspect]
     Dates: start: 20060801, end: 20060801
  3. EVISTA [Concomitant]
  4. ESTROGENIC SUBSTANCE [Concomitant]
  5. GARLIC (ALLIUM SATIVUM) [Concomitant]
  6. MULTIVITAMIN [Concomitant]
  7. ASPIRIN [Concomitant]
  8. LYSINE (LYSINE) [Concomitant]

REACTIONS (2)
  - DRUG INEFFECTIVE [None]
  - MIDDLE INSOMNIA [None]
